FAERS Safety Report 7421688-7 (Version None)
Quarter: 2011Q2

REPORT INFORMATION
  Report Type: 
  Country: None (occurrence: None)
  Receive Date: 20110418
  Receipt Date: 20110413
  Transmission Date: 20111010
  Serious: Yes (Death)
  Sender: FDA-Public Use
  Company Number: GR-PFIZER INC-2011008384

PATIENT
  Age: 73 Year
  Sex: Female

DRUGS (6)
  1. TYGACIL [Suspect]
     Indication: SEPTIC SHOCK
     Dosage: 50 MG, 1X/DAY
     Route: 042
     Dates: start: 20090526, end: 20090526
  2. TYGACIL [Suspect]
     Indication: COMA
  3. TAZOCIN [Suspect]
     Indication: COMA
     Dosage: 4.5 MG, 3X/DAY
     Route: 042
     Dates: start: 20090525, end: 20090525
  4. TYGACIL [Suspect]
     Indication: MULTI-ORGAN DISORDER
  5. TAZOCIN [Suspect]
     Indication: MULTI-ORGAN DISORDER
  6. TAZOCIN [Suspect]
     Indication: SEPTIC SHOCK
     Dosage: 2.25 G, 3X/DAY
     Route: 042
     Dates: start: 20090520, end: 20090524

REACTIONS (3)
  - MULTI-ORGAN FAILURE [None]
  - CARDIO-RESPIRATORY ARREST [None]
  - GALLBLADDER PERFORATION [None]
